FAERS Safety Report 13300827 (Version 1)
Quarter: 2017Q1

REPORT INFORMATION
  Report Type: Spontaneous
  Country: BR (occurrence: US)
  Receive Date: 20170306
  Receipt Date: 20170306
  Transmission Date: 20170428
  Serious: Yes (Death, Hospitalization)
  Sender: FDA-Public Use
  Company Number: None

PATIENT
  Age: 72 Year
  Sex: Male
  Weight: 44 kg

DRUGS (17)
  1. ATENOLOL. [Concomitant]
     Active Substance: ATENOLOL
  2. DEXTRAN [Concomitant]
     Active Substance: DEXTRAN
  3. RANITIDINE. [Concomitant]
     Active Substance: RANITIDINE
  4. VITAMIN B COMPLEX [Concomitant]
     Active Substance: CYANOCOBALAMIN\DEXPANTHENOL\NIACINAMIDE\PYRIDOXINE HYDROCHLORIDE\RIBOFLAVIN 5^-PHOSPHATE SODIUM\THIAMINE HYDROCHLORIDE\VITAMIN B COMPLEX
  5. BUTYLBROMIDE [Concomitant]
  6. WARFARIN SODIUM. [Suspect]
     Active Substance: WARFARIN SODIUM
     Indication: CORONARY ARTERY OCCLUSION
     Dosage: ?          QUANTITY:1 CAPSULE(S);?
     Route: 048
  7. DIGOXIN. [Concomitant]
     Active Substance: DIGOXIN
  8. CALCIUM CARBONATE. [Concomitant]
     Active Substance: CALCIUM CARBONATE
  9. PARACETAMOL [Concomitant]
     Active Substance: ACETAMINOPHEN
  10. SULFAMETHOXAZOLE\TRIMETHOPRIM [Concomitant]
     Active Substance: SULFAMETHOXAZOLE\TRIMETHOPRIM
  11. ISOSORBID [Concomitant]
  12. LACTULOSE. [Concomitant]
     Active Substance: LACTULOSE
  13. FOLIC ACID. [Concomitant]
     Active Substance: FOLIC ACID
  14. SPIRONOLACTONE. [Concomitant]
     Active Substance: SPIRONOLACTONE
  15. SIMVASTATIN. [Concomitant]
     Active Substance: SIMVASTATIN
  16. ACETYLSALICYLIC ACID [Concomitant]
     Active Substance: ASPIRIN
  17. SCOPOLAMINE [Concomitant]
     Active Substance: SCOPOLAMINE

REACTIONS (4)
  - Intestinal haemorrhage [None]
  - Loss of consciousness [None]
  - Hypovolaemic shock [None]
  - Syncope [None]

NARRATIVE: CASE EVENT DATE: 20160201
